FAERS Safety Report 7644417-0 (Version None)
Quarter: 2011Q3

REPORT INFORMATION
  Report Type: 
  Country: None (occurrence: None)
  Receive Date: 20110729
  Receipt Date: 20110719
  Transmission Date: 20111222
  Serious: Yes (Other)
  Sender: FDA-Public Use
  Company Number: PT-ROCHE-776765

PATIENT
  Age: 63 Year
  Sex: Female
  Weight: 85 kg

DRUGS (1)
  1. XELODA [Suspect]
     Route: 048
     Dates: start: 20110209, end: 20110321

REACTIONS (1)
  - LICHEN PLANUS [None]
